FAERS Safety Report 4451710-1 (Version None)
Quarter: 2004Q3

REPORT INFORMATION
  Report Type: 
  Country: None (occurrence: None)
  Receive Date: 20040916
  Receipt Date: 20040908
  Transmission Date: 20050211
  Serious: Yes (Life-Threatening, Hospitalization, Disabling, Other)
  Sender: FDA-Public Use
  Company Number: US-MERCK-0409USA00753

PATIENT
  Age: 81 Year
  Sex: Female
  Weight: 56 kg

DRUGS (3)
  1. ACTONEL [Concomitant]
     Route: 065
  2. VIOXX [Suspect]
     Indication: BACK PAIN
     Route: 048
     Dates: start: 20030507, end: 20040805
  3. VIOXX [Suspect]
     Indication: OSTEOARTHRITIS
     Route: 048
     Dates: start: 20030507, end: 20040805

REACTIONS (5)
  - ABDOMINAL DISTENSION [None]
  - ASTHENIA [None]
  - FLATULENCE [None]
  - GASTRIC ULCER PERFORATION [None]
  - OEDEMA PERIPHERAL [None]
